FAERS Safety Report 12861759 (Version 1)
Quarter: 2016Q4

REPORT INFORMATION
  Report Type: Spontaneous
  Country: BR (occurrence: BR)
  Receive Date: 20161019
  Receipt Date: 20161019
  Transmission Date: 20170207
  Serious: Yes (Death, Hospitalization)
  Sender: FDA-Public Use
  Company Number: BR-ASTRAZENECA-2016SF08529

PATIENT
  Age: 1101 Month
  Sex: Female

DRUGS (1)
  1. VANNAIR [Suspect]
     Active Substance: BUDESONIDE\FORMOTEROL FUMARATE DIHYDRATE
     Indication: ASTHMA
     Dosage: 160/4.5 MICROGRAM,TWO TIMES A DAY
     Route: 055
     Dates: start: 201508

REACTIONS (2)
  - Renal impairment [Unknown]
  - Urinary tract infection [Fatal]

NARRATIVE: CASE EVENT DATE: 201511
